FAERS Safety Report 4463379-0 (Version None)
Quarter: 2004Q3

REPORT INFORMATION
  Report Type: 
  Country: None (occurrence: None)
  Receive Date: 20040928
  Receipt Date: 20040915
  Transmission Date: 20050211
  Serious: Yes (Hospitalization)
  Sender: FDA-Public Use
  Company Number: A0525806A

PATIENT
  Age: 54 Year
  Sex: Male

DRUGS (8)
  1. COREG [Suspect]
     Indication: CARDIAC FAILURE CONGESTIVE
     Dosage: 25 MG/TWICE PER DAY/ORAL
     Route: 048
     Dates: start: 19971001
  2. DIGOXIN [Concomitant]
  3. LISINOPRIL [Concomitant]
  4. ZOLPIDEM TARTRATE [Concomitant]
  5. TRAZODONE HCL [Concomitant]
  6. FRUSEMIDE [Concomitant]
  7. SIMVASTATIN [Concomitant]
  8. ASPIRIN [Concomitant]

REACTIONS (10)
  - CONTUSION [None]
  - HYPERKERATOSIS [None]
  - JOINT SWELLING [None]
  - OEDEMA PERIPHERAL [None]
  - PAIN [None]
  - PAIN IN EXTREMITY [None]
  - PARAESTHESIA [None]
  - POOR PERIPHERAL CIRCULATION [None]
  - SKIN DISCOLOURATION [None]
  - THROMBOSIS [None]
